FAERS Safety Report 25191946 (Version 1)
Quarter: 2025Q2

REPORT INFORMATION
  Report Type: Report from Study
  Country: CA (occurrence: CA)
  Receive Date: 20250414
  Receipt Date: 20250414
  Transmission Date: 20250716
  Serious: Yes (Death)
  Sender: OTSUKA
  Company Number: CA-OTSUKA-2022_022901

PATIENT
  Age: 54 Year
  Sex: Male

DRUGS (2)
  1. TOLVAPTAN [Suspect]
     Active Substance: TOLVAPTAN
     Indication: Congenital cystic kidney disease
     Route: 048
     Dates: start: 20220221
  2. DOXAZOSIN MESYLATE [Suspect]
     Active Substance: DOXAZOSIN MESYLATE
     Indication: Product used for unknown indication
     Route: 065

REACTIONS (10)
  - Complications of transplanted liver [Fatal]
  - COVID-19 [Recovering/Resolving]
  - Migraine [Unknown]
  - Renal pain [Recovering/Resolving]
  - Malaise [Recovering/Resolving]
  - Nausea [Unknown]
  - Polydipsia [Unknown]
  - Fatigue [Not Recovered/Not Resolved]
  - Polyuria [Unknown]
  - Aspartate aminotransferase increased [Unknown]

NARRATIVE: CASE EVENT DATE: 20230217
